FAERS Safety Report 22383589 (Version 1)
Quarter: 2023Q2

REPORT INFORMATION
  Report Type: Spontaneous
  Country: US (occurrence: None)
  Receive Date: 20230526
  Receipt Date: 20230526
  Transmission Date: 20230721
  Serious: No
  Sender: FDA-Public Use
  Company Number: None

PATIENT
  Sex: Female

DRUGS (7)
  1. IBRANCE [Suspect]
     Active Substance: PALBOCICLIB
     Indication: Breast cancer female
     Dosage: 1T 21D ON /7D OFF QD PO?
     Route: 048
     Dates: start: 20221207
  2. FEMARA [Concomitant]
  3. PRILOSEC [Concomitant]
     Active Substance: OMEPRAZOLE MAGNESIUM
  4. ALBUTEROL [Concomitant]
  5. TYLENOL [Concomitant]
  6. VITAMIN D3 [Concomitant]
     Active Substance: CHOLECALCIFEROL
  7. HM VITAMIN B12 [Concomitant]

REACTIONS (2)
  - Tumour marker increased [None]
  - HER2 positive breast cancer [None]
